FAERS Safety Report 13408178 (Version 1)
Quarter: 2017Q2

REPORT INFORMATION
  Report Type: Spontaneous
  Country: US (occurrence: US)
  Receive Date: 20170405
  Receipt Date: 20170405
  Transmission Date: 20170830
  Serious: Yes (Hospitalization)
  Sender: FDA-Public Use
  Company Number: None

PATIENT
  Age: 60 Year
  Sex: Male
  Weight: 52.02 kg

DRUGS (2)
  1. CETUXIMAB. [Suspect]
     Active Substance: CETUXIMAB
     Indication: SQUAMOUS CELL CARCINOMA OF HEAD AND NECK
     Route: 042
     Dates: start: 20170125, end: 20170306
  2. PALBOCICLIB [Suspect]
     Active Substance: PALBOCICLIB
     Indication: SQUAMOUS CELL CARCINOMA OF HEAD AND NECK
     Dosage: 125 MG DAYS 1-21 PO
     Route: 048
     Dates: start: 20170125, end: 20170314

REACTIONS (7)
  - Blood alcohol increased [None]
  - Hypokalaemia [None]
  - Wheezing [None]
  - Dyspnoea [None]
  - Sputum increased [None]
  - Drug dose omission [None]
  - Adult failure to thrive [None]

NARRATIVE: CASE EVENT DATE: 20170323
